FAERS Safety Report 18808941 (Version 9)
Quarter: 2021Q2

REPORT INFORMATION
  Report Type: Report from Study
  Country: TH (occurrence: TH)
  Receive Date: 20210129
  Receipt Date: 20210610
  Transmission Date: 20210717
  Serious: Yes (Life-Threatening, Hospitalization)
  Sender: FDA-Public Use
  Company Number: TH-ROCHE-2744472

PATIENT
  Age: 64 Year
  Sex: Male
  Weight: 65.3 kg

DRUGS (20)
  1. LACTULOSE. [Concomitant]
     Active Substance: LACTULOSE
     Dates: start: 20210126, end: 20210202
  2. ALDACTONE [Concomitant]
     Active Substance: SPIRONOLACTONE
     Dates: start: 20210204
  3. OMEPRAZOLE. [Concomitant]
     Active Substance: OMEPRAZOLE
     Dates: start: 20210208
  4. LACTULOSE. [Concomitant]
     Active Substance: LACTULOSE
     Indication: PROPHYLAXIS
     Dates: start: 20210129, end: 20210129
  5. VALIUM [Concomitant]
     Active Substance: DIAZEPAM
     Dates: start: 20210127, end: 20210127
  6. LACTULOSE. [Concomitant]
     Active Substance: LACTULOSE
     Dates: start: 20210126, end: 20210127
  7. THIAMINE. [Concomitant]
     Active Substance: THIAMINE
     Dates: start: 20210126, end: 20210128
  8. METRONIDAZOLE. [Concomitant]
     Active Substance: METRONIDAZOLE
     Indication: ANAL ABSCESS
     Dates: start: 20210129, end: 20210205
  9. VITAMIN B COMPLEX [Concomitant]
     Active Substance: CYANOCOBALAMIN\DEXPANTHENOL\NIACINAMIDE\PYRIDOXINE HYDROCHLORIDE\RIBOFLAVIN 5^-PHOSPHATE SODIUM\THIAMINE HYDROCHLORIDE\VITAMIN B COMPLEX
     Indication: PROPHYLAXIS
     Dates: start: 20210126
  10. FOLIC ACID. [Concomitant]
     Active Substance: FOLIC ACID
     Indication: PROPHYLAXIS
     Dates: start: 20210126
  11. ALDACTONE [Concomitant]
     Active Substance: SPIRONOLACTONE
     Indication: PROPHYLAXIS
     Dates: start: 20210128, end: 20210131
  12. OMEPRAZOLE. [Concomitant]
     Active Substance: OMEPRAZOLE
     Indication: PROPHYLAXIS
     Dates: start: 20210126, end: 20210207
  13. ATEZOLIZUMAB. [Suspect]
     Active Substance: ATEZOLIZUMAB
     Indication: HEPATOCELLULAR CARCINOMA
     Dosage: ON 14/DEC/2020, HE RECEIVED MOST RECENT DOSE OF ATEZOLIZUMAB (1200 MG) PRIOR TO ADVERSE EVENT ONSET.
     Route: 041
     Dates: start: 20201214
  14. LASIX [Concomitant]
     Active Substance: FUROSEMIDE
     Dates: start: 20210130
  15. AIR?X [Concomitant]
     Indication: ABDOMINAL DISTENSION
     Dates: start: 20210118, end: 20210125
  16. LACTULOSE. [Concomitant]
     Active Substance: LACTULOSE
     Indication: CONSTIPATION
     Dates: start: 20210126, end: 20210126
  17. ALDACTONE [Concomitant]
     Active Substance: SPIRONOLACTONE
     Dates: start: 20210131, end: 20210203
  18. BEVACIZUMAB. [Suspect]
     Active Substance: BEVACIZUMAB
     Indication: HEPATOCELLULAR CARCINOMA
     Dosage: ON 14/DEC/2020, HE RECEIVED MOST RECENT DOSE OF BEVACIZUMAB (910 MG) PRIOR TO ADVERSE EVENT ONSET
     Route: 042
     Dates: start: 20201214
  19. TRIAMCINOLONE [Concomitant]
     Active Substance: TRIAMCINOLONE
     Indication: PRURITUS
     Route: 062
     Dates: start: 20210105
  20. LASIX [Concomitant]
     Active Substance: FUROSEMIDE
     Indication: ABDOMINAL DISTENSION
     Dates: start: 20210118, end: 20210125

REACTIONS (2)
  - Hepatitis [Not Recovered/Not Resolved]
  - Meningitis bacterial [Recovered/Resolved]

NARRATIVE: CASE EVENT DATE: 20210104
